FAERS Safety Report 9784183 (Version 2)
Quarter: 2014Q1

REPORT INFORMATION
  Report Type: Report from Study
  Country: MX (occurrence: MX)
  Receive Date: 20131226
  Receipt Date: 20140108
  Transmission Date: 20141002
  Serious: Yes (Other)
  Sender: FDA-Public Use
  Company Number: PHHY2013MX147390

PATIENT
  Age: 66 Year
  Sex: Female
  Weight: 68 kg

DRUGS (5)
  1. GALVUS MET [Suspect]
     Indication: DIABETES MELLITUS
     Dosage: 1.5 DF, (850 MG METF AND 50 MG VILD) DAILY
     Route: 048
     Dates: start: 201309
  2. GALVUS MET [Suspect]
     Dosage: 0.5 DF, (850 MG METF AND 50 MG VILD) AT NIGHT DAILY
     Route: 048
  3. EXFORGE [Suspect]
     Indication: HYPERTENSION
     Dosage: 1 DF, (160 MG VALS AND 10 MG AMLO) IN THE MORNING
     Route: 048
  4. TENORMIN [Concomitant]
     Indication: HYPERTENSION
     Dosage: 1 DF, (100 MG) IN THE MORNING DAILY
     Route: 048
  5. TRAYENTA DUO [Concomitant]
     Indication: DIABETES MELLITUS
     Dosage: 1 TABLET BEFORE BREAKFAST EVERY DAY
     Route: 048

REACTIONS (7)
  - Thyroid mass [Recovered/Resolved]
  - Weight increased [Recovered/Resolved]
  - Throat irritation [Recovered/Resolved]
  - Dysphonia [Recovered/Resolved]
  - Hypersensitivity [Recovered/Resolved]
  - Paraesthesia [Recovered/Resolved]
  - Wrong technique in drug usage process [Unknown]
